FAERS Safety Report 7412135-X (Version None)
Quarter: 2011Q2

REPORT INFORMATION
  Report Type: 
  Country: None (occurrence: None)
  Receive Date: 20110408
  Receipt Date: 20110408
  Transmission Date: 20111010
  Serious: Yes (Life-Threatening, Hospitalization, Other)
  Sender: FDA-Public Use
  Company Number: None

PATIENT
  Sex: Male
  Weight: 267.2 kg

DRUGS (1)
  1. LITHIUM CARBONATE [Suspect]
     Indication: BIPOLAR DISORDER
     Dosage: 1200 MG DAILY PO
     Route: 048
     Dates: start: 20000101

REACTIONS (10)
  - PSYCHOMOTOR RETARDATION [None]
  - CLUMSINESS [None]
  - HYPERVITAMINOSIS D [None]
  - HYPERCALCAEMIA [None]
  - VITAMIN D DECREASED [None]
  - ANTIPSYCHOTIC DRUG LEVEL INCREASED [None]
  - RENAL FAILURE ACUTE [None]
  - HYPERPARATHYROIDISM PRIMARY [None]
  - SLUGGISHNESS [None]
  - FAMILIAL HYPOCALCIURIC HYPERCALCAEMIA [None]
